FAERS Safety Report 9131305 (Version 2)
Quarter: 2013Q2

REPORT INFORMATION
  Report Type: Spontaneous
  Country: IT (occurrence: IT)
  Receive Date: 20130301
  Receipt Date: 20130418
  Transmission Date: 20140414
  Serious: Yes (Hospitalization)
  Sender: FDA-Public Use
  Company Number: IT-UCBSA-079366

PATIENT
  Age: 73 Year
  Sex: Female

DRUGS (4)
  1. KEPPRA [Suspect]
     Indication: PARTIAL SEIZURES
     Dosage: 500MG, 60 FILM COATED TABLETS
     Route: 048
     Dates: start: 20121201, end: 20121201
  2. KEPPRA [Suspect]
     Indication: PARTIAL SEIZURES
     Route: 048
     Dates: end: 2012
  3. TEGRETOL [Suspect]
     Indication: PARTIAL SEIZURES
     Dosage: 400 MG, 30 MODIFIED RELEASE TABLETS
     Route: 048
     Dates: start: 20121201, end: 20121201
  4. TEGRETOL [Suspect]
     Indication: PARTIAL SEIZURES
     Route: 048
     Dates: end: 2012

REACTIONS (4)
  - Asthenia [Recovered/Resolved]
  - Ataxia [Recovered/Resolved]
  - Dysarthria [Recovered/Resolved]
  - Nausea [Recovered/Resolved]
